FAERS Safety Report 11701963 (Version 1)
Quarter: 2015Q4

REPORT INFORMATION
  Report Type: Spontaneous
  Country: US (occurrence: US)
  Receive Date: 20151105
  Receipt Date: 20151105
  Transmission Date: 20160304
  Serious: Yes (Hospitalization)
  Sender: FDA-Public Use
  Company Number: US-SIGMA-TAU US-2015STPI000704

PATIENT
  Age: 1 Year
  Sex: Male

DRUGS (1)
  1. ONCASPAR [Suspect]
     Active Substance: PEGASPARGASE
     Indication: ACUTE LYMPHOCYTIC LEUKAEMIA
     Dosage: 1220 IU, UNK
     Route: 042
     Dates: start: 20151022, end: 20151023

REACTIONS (6)
  - Infusion related reaction [None]
  - Rash [None]
  - Screaming [None]
  - Discomfort [None]
  - Irritability [None]
  - Opisthotonus [None]

NARRATIVE: CASE EVENT DATE: 20150928
